FAERS Safety Report 9265030 (Version 1)
Quarter: 2013Q2

REPORT INFORMATION
  Report Type: Spontaneous
  Country: CO (occurrence: CO)
  Receive Date: 20130501
  Receipt Date: 20130501
  Transmission Date: 20140414
  Serious: Yes (Death, Hospitalization)
  Sender: FDA-Public Use
  Company Number: CO-MILLENNIUM PHARMACEUTICALS, INC.-2013-03079

PATIENT
  Sex: 0

DRUGS (2)
  1. VELCADE [Suspect]
     Indication: PLASMA CELL MYELOMA
     Dosage: 2.3 MG, UNK
     Route: 065
     Dates: start: 20130305, end: 20130310
  2. VELCADE [Suspect]
     Dosage: 1.5 MG, UNK
     Route: 065
     Dates: start: 20130311

REACTIONS (2)
  - Myocardial infarction [Fatal]
  - Mouth haemorrhage [Fatal]
